FAERS Safety Report 8392697 (Version 9)
Quarter: 2013Q2

REPORT INFORMATION
  Report Type: Spontaneous
  Country: US (occurrence: US)
  Receive Date: 20120206
  Receipt Date: 20130529
  Transmission Date: 20140414
  Serious: Yes (Life-Threatening, Hospitalization, Other)
  Sender: FDA-Public Use
  Company Number: US-ASTRAZENECA-2011SE31273

PATIENT
  Age: 56 Year
  Sex: Male
  Weight: 83.9 kg

DRUGS (16)
  1. SEROQUEL XR [Suspect]
     Indication: BIPOLAR DISORDER
     Route: 048
     Dates: start: 200912
  2. SEROQUEL XR [Suspect]
     Indication: SCHIZOAFFECTIVE DISORDER BIPOLAR TYPE
     Route: 048
     Dates: start: 200912
  3. SEROQUEL XR [Suspect]
     Indication: BIPOLAR DISORDER
     Route: 048
     Dates: start: 200912
  4. SEROQUEL XR [Suspect]
     Indication: SCHIZOAFFECTIVE DISORDER BIPOLAR TYPE
     Route: 048
     Dates: start: 200912
  5. SEROQUEL XR [Suspect]
     Indication: BIPOLAR DISORDER
     Route: 048
  6. SEROQUEL XR [Suspect]
     Indication: SCHIZOAFFECTIVE DISORDER BIPOLAR TYPE
     Route: 048
  7. SEROQUEL XR [Suspect]
     Indication: BIPOLAR DISORDER
     Route: 048
  8. SEROQUEL XR [Suspect]
     Indication: SCHIZOAFFECTIVE DISORDER BIPOLAR TYPE
     Route: 048
  9. BUSPAR [Concomitant]
  10. ELAVIL [Concomitant]
  11. FLEXERIL [Concomitant]
  12. LORTAB [Concomitant]
  13. XANAX [Concomitant]
  14. ULTRAM [Concomitant]
  15. HIGH BLOOD PRESSURE MEDICATIONS [Concomitant]
     Indication: HYPERTENSION
  16. 12 OTHER MEDICATIONS [Concomitant]

REACTIONS (23)
  - Cataract [Unknown]
  - Suicidal ideation [Unknown]
  - Myocardial infarction [Unknown]
  - Agitation [Unknown]
  - Lack of spontaneous speech [Unknown]
  - Disturbance in attention [Unknown]
  - Myocardial infarction [Unknown]
  - Malaise [Unknown]
  - Dysphemia [Unknown]
  - Weight decreased [Unknown]
  - Cardiac disorder [Unknown]
  - Self esteem decreased [Unknown]
  - Mental impairment [Unknown]
  - Intervertebral disc disorder [Unknown]
  - Serum serotonin increased [Unknown]
  - Depression [Unknown]
  - Adverse event [Unknown]
  - Somnolence [Unknown]
  - Dysarthria [Unknown]
  - Drug effect increased [Unknown]
  - Intentional drug misuse [Unknown]
  - Intentional drug misuse [Unknown]
  - Drug dose omission [Unknown]
